FAERS Safety Report 8621658-7 (Version None)
Quarter: 2012Q3

REPORT INFORMATION
  Report Type: 
  Country: None (occurrence: None)
  Receive Date: 20120817
  Receipt Date: 20120817
  Transmission Date: 20120928
  Serious: Yes (Other)
  Sender: FDA-Public Use
  Company Number: None

PATIENT
  Age: 35 Year
  Sex: Female
  Weight: 98.4306 kg

DRUGS (2)
  1. PARAGARD T 380A [Suspect]
     Indication: CONTRACEPTION
     Dosage: 1 INTRA-UTERINE
     Route: 015
     Dates: start: 20120820, end: 20120820
  2. PARAGARD T 380A [Suspect]
     Indication: CONTRACEPTION
     Dosage: 1 INTRA-UTERINE
     Route: 015
     Dates: start: 20080804, end: 20120820

REACTIONS (2)
  - PREGNANCY WITH CONTRACEPTIVE DEVICE [None]
  - MATERNAL EXPOSURE DURING PREGNANCY [None]
